FAERS Safety Report 6434238-9 (Version None)
Quarter: 2009Q4

REPORT INFORMATION
  Report Type: 
  Country: None (occurrence: None)
  Receive Date: 20091110
  Receipt Date: 20090604
  Transmission Date: 20100525
  Serious: No
  Sender: FDA-Public Use
  Company Number: US-ASTRAZENECA-2009SE10069

PATIENT

DRUGS (1)
  1. PRILOSEC OTC [Suspect]
     Dosage: 2 TABLET, 1 ONLY FOR 1 DAY
     Route: 048
     Dates: start: 20090604, end: 20090604

REACTIONS (3)
  - ACCIDENTAL EXPOSURE [None]
  - INCORRECT DOSE ADMINISTERED [None]
  - NO ADVERSE EVENT [None]
